FAERS Safety Report 5014490-7 (Version None)
Quarter: 2006Q2

REPORT INFORMATION
  Report Type: 
  Country: None (occurrence: None)
  Receive Date: 20060525
  Receipt Date: 20060426
  Transmission Date: 20061013
  Serious: Yes (Hospitalization, Disabling)
  Sender: FDA-Public Use
  Company Number: 2006058667

PATIENT
  Sex: Female

DRUGS (1)
  1. CELEBREX [Suspect]
     Indication: ARTHRITIS
     Dosage: 200 MG (200 MG, 1 IN 1 D)
     Dates: start: 19980101, end: 20050101

REACTIONS (7)
  - ARTHRITIS [None]
  - ASTHENIA [None]
  - CONDITION AGGRAVATED [None]
  - GASTROINTESTINAL ULCER HAEMORRHAGE [None]
  - MEMORY IMPAIRMENT [None]
  - SPEECH DISORDER [None]
  - TRANSIENT ISCHAEMIC ATTACK [None]
